FAERS Safety Report 5979610-6 (Version None)
Quarter: 2008Q4

REPORT INFORMATION
  Report Type: 
  Country: None (occurrence: None)
  Receive Date: 20081204
  Receipt Date: 20081121
  Transmission Date: 20090506
  Serious: Yes (Other)
  Sender: FDA-Public Use
  Company Number: AR-ABBOTT-08P-007-0490979-00

PATIENT
  Sex: Male

DRUGS (2)
  1. RITONAVIR SOFT GELATIN CAPSULES [Suspect]
     Indication: DRUG USE FOR UNKNOWN INDICATION
  2. ATAZANAVIR SULFATE [Suspect]
     Indication: HIV INFECTION
     Dates: start: 20020701

REACTIONS (5)
  - ACANTHAMOEBA INFECTION [None]
  - BLOOD BILIRUBIN INCREASED [None]
  - HYPERGLYCAEMIA [None]
  - INFECTION [None]
  - ULCERATIVE KERATITIS [None]
